FAERS Safety Report 6068155-3 (Version None)
Quarter: 2009Q1

REPORT INFORMATION
  Report Type: 
  Country: None (occurrence: None)
  Receive Date: 20090206
  Receipt Date: 20090129
  Transmission Date: 20090719
  Serious: Yes (Death, Other)
  Sender: FDA-Public Use
  Company Number: US-PFIZER INC-2009164270

PATIENT
  Sex: Female

DRUGS (2)
  1. LIPITOR [Suspect]
  2. NEURONTIN [Suspect]

REACTIONS (2)
  - DEATH [None]
  - DIABETIC COMA [None]
